FAERS Safety Report 25945616 (Version 3)
Quarter: 2025Q4

REPORT INFORMATION
  Report Type: Report from Study
  Country: US (occurrence: US)
  Receive Date: 20251021
  Receipt Date: 20251216
  Transmission Date: 20260117
  Serious: Yes (Other)
  Sender: ALNYLAM PHARMACEUTICALS
  Company Number: US-ALNYLAM PHARMACEUTICALS, INC.-ALN-2025-006398

PATIENT

DRUGS (4)
  1. GIVLAARI [Suspect]
     Active Substance: GIVOSIRAN SODIUM
     Indication: Porphyria acute
     Dosage: 189 MILLIGRAM, MONTHLY (EVERY 30 DAYS)
  2. GIVLAARI [Suspect]
     Active Substance: GIVOSIRAN SODIUM
     Dosage: 189 MILLIGRAM, MONTHLY (EVERY 30 DAYS)
  3. IVERMECTIN [Suspect]
     Active Substance: IVERMECTIN
     Indication: Product used for unknown indication
     Dosage: UNK
     Route: 065
  4. HEMIN [Concomitant]
     Active Substance: HEMIN
     Indication: Product used for unknown indication
     Dosage: UNK
     Route: 065

REACTIONS (11)
  - Porphyria [Recovering/Resolving]
  - Inappropriate schedule of product administration [Unknown]
  - Porphyrins urine increased [Not Recovered/Not Resolved]
  - Nausea [Unknown]
  - Candida infection [Unknown]
  - Abdominal distension [Unknown]
  - Therapeutic response delayed [Unknown]
  - Gastrointestinal microorganism overgrowth [Unknown]
  - Insomnia [Recovering/Resolving]
  - Retching [Unknown]
  - Pre-existing condition improved [Unknown]
